FAERS Safety Report 5169350-8 (Version None)
Quarter: 2006Q4

REPORT INFORMATION
  Report Type: 
  Country: None (occurrence: None)
  Receive Date: 20061211
  Receipt Date: 20060302
  Transmission Date: 20070319
  Serious: Yes (Hospitalization, Other)
  Sender: FDA-Public Use
  Company Number: US-ELI_LILLY_AND_COMPANY-US200603003513

PATIENT
  Age: 51 Year
  Sex: Male
  Weight: 50.793 kg

DRUGS (3)
  1. QUETIAPINE FUMARATE [Concomitant]
     Dates: start: 20000301, end: 20010101
  2. MIRTAZAPINE [Concomitant]
     Dates: start: 19980501
  3. ZYPREXA [Suspect]
     Dosage: 20 MG, UNK

REACTIONS (9)
  - BLOOD CHOLESTEROL ABNORMAL [None]
  - DIABETES MELLITUS [None]
  - GASTRIC DISORDER [None]
  - HEPATITIS VIRAL [None]
  - HYPERPHAGIA [None]
  - PANCREATITIS [None]
  - POLYDIPSIA [None]
  - VISION BLURRED [None]
  - WEIGHT DECREASED [None]
